FAERS Safety Report 8108390-3 (Version None)
Quarter: 2012Q1

REPORT INFORMATION
  Report Type: 
  Country: None (occurrence: None)
  Receive Date: 20120202
  Receipt Date: 20120124
  Transmission Date: 20120608
  Serious: Yes (Other)
  Sender: FDA-Public Use
  Company Number: PHHY2012NL007239

PATIENT
  Age: 59 Year
  Sex: Female

DRUGS (3)
  1. PAMIDRONATE DISODIUM [Suspect]
     Indication: METASTASES TO BONE
     Dosage: 15 MG, QMO
     Route: 042
  2. PAMIDRONATE DISODIUM [Suspect]
     Dosage: 60 MG, BIW
     Route: 042
  3. PAMIDRONATE DISODIUM [Suspect]
     Dosage: 300 TO 600 MG, DAILY
     Route: 048

REACTIONS (4)
  - BLOOD CALCIUM INCREASED [None]
  - FOCAL SEGMENTAL GLOMERULOSCLEROSIS [None]
  - PROTEINURIA [None]
  - NEPHROTIC SYNDROME [None]
